FAERS Safety Report 5239485-X (Version None)
Quarter: 2007Q1

REPORT INFORMATION
  Report Type: 
  Country: None (occurrence: None)
  Receive Date: 20070214
  Receipt Date: 20070214
  Transmission Date: 20070707
  Serious: Yes (Disabling)
  Sender: FDA-Public Use
  Company Number: None

PATIENT
  Sex: Male
  Weight: 99.3377 kg

DRUGS (1)
  1. VISIPAQUE 320 [Suspect]
     Indication: UROGRAM
     Dosage: 50 ML  ONCE
     Dates: start: 20061212, end: 20061212

REACTIONS (9)
  - BLOOD PRESSURE SYSTOLIC INCREASED [None]
  - COUGH [None]
  - EYELID OEDEMA [None]
  - FLUSHING [None]
  - LARYNGEAL OEDEMA [None]
  - NAUSEA [None]
  - PRURITUS [None]
  - RESPIRATORY DISORDER [None]
  - SWELLING FACE [None]
